FAERS Safety Report 8830745 (Version 1)
Quarter: 2012Q4

REPORT INFORMATION
  Report Type: 
  Country: AU (occurrence: AU)
  Receive Date: 20121009
  Receipt Date: 20121009
  Transmission Date: 20130627
  Serious: Yes (Other)
  Sender: FDA-Public Use
  Company Number: PHHY2012AU088097

PATIENT
  Sex: Male

DRUGS (1)
  1. SANDOSTATIN LAR [Suspect]
     Indication: CARCINOID SYNDROME
     Dosage: 30 mg, UNK
     Route: 030

REACTIONS (3)
  - Malaise [Recovering/Resolving]
  - Urinary tract infection [Recovering/Resolving]
  - Testicular swelling [Recovering/Resolving]
